FAERS Safety Report 8084228-8 (Version None)
Quarter: 2012Q1

REPORT INFORMATION
  Report Type: 
  Country: None (occurrence: None)
  Receive Date: 20120128
  Receipt Date: 20110119
  Transmission Date: 20120608
  Serious: No
  Sender: FDA-Public Use
  Company Number: US-ABBOTT-11P-163-0699605-00

PATIENT
  Sex: Female
  Weight: 72.64 kg

DRUGS (15)
  1. BENADRYL [Concomitant]
     Indication: INSOMNIA
     Route: 048
  2. METHOTREXATE [Concomitant]
     Indication: PRODUCT USED FOR UNKNOWN INDICATION
     Route: 048
  3. HUMIRA [Suspect]
     Indication: RHEUMATOID ARTHRITIS
     Dates: start: 20100715
  4. ACETAMINOPHEN [Concomitant]
     Indication: PRODUCT USED FOR UNKNOWN INDICATION
  5. PREDNISONE TAB [Concomitant]
     Indication: PRODUCT USED FOR UNKNOWN INDICATION
     Route: 048
  6. FOLIC ACID [Concomitant]
     Indication: PRODUCT USED FOR UNKNOWN INDICATION
  7. TRIPLE FLEX [Concomitant]
     Indication: PRODUCT USED FOR UNKNOWN INDICATION
  8. MG [Concomitant]
     Indication: PRODUCT USED FOR UNKNOWN INDICATION
  9. FISH OIL [Concomitant]
     Indication: PRODUCT USED FOR UNKNOWN INDICATION
  10. M.V.I. [Concomitant]
     Indication: PRODUCT USED FOR UNKNOWN INDICATION
  11. VITAMIN D [Concomitant]
     Indication: PRODUCT USED FOR UNKNOWN INDICATION
  12. VIT C [Concomitant]
     Indication: PRODUCT USED FOR UNKNOWN INDICATION
  13. LEUTENE [Concomitant]
     Indication: PRODUCT USED FOR UNKNOWN INDICATION
  14. POTASSIUM OTC [Concomitant]
     Indication: PRODUCT USED FOR UNKNOWN INDICATION
  15. CALCIUM [Concomitant]
     Indication: PRODUCT USED FOR UNKNOWN INDICATION

REACTIONS (5)
  - INJECTION SITE ERYTHEMA [None]
  - AXILLARY PAIN [None]
  - LOCAL SWELLING [None]
  - INJECTION SITE SWELLING [None]
  - INJECTION SITE PRURITUS [None]
